FAERS Safety Report 13569892 (Version 1)
Quarter: 2017Q2

REPORT INFORMATION
  Report Type: Other
  Country: CN (occurrence: CN)
  Receive Date: 20170522
  Receipt Date: 20170522
  Transmission Date: 20170830
  Serious: Yes (Other)
  Sender: FDA-Public Use
  Company Number: CN-GEHC-2017CSU001360

PATIENT

DRUGS (1)
  1. OMNIPAQUE [Suspect]
     Active Substance: IOHEXOL
     Indication: CEREBRAL INFARCTION
     Dosage: 80 ML, SINGLE
     Route: 042
     Dates: start: 20170309, end: 20170309

REACTIONS (2)
  - Generalised erythema [Recovered/Resolved]
  - Pruritus [Recovered/Resolved]

NARRATIVE: CASE EVENT DATE: 20170310
